FAERS Safety Report 7724302-6 (Version None)
Quarter: 2011Q3

REPORT INFORMATION
  Report Type: 
  Country: None (occurrence: None)
  Receive Date: 20110829
  Receipt Date: 20110815
  Transmission Date: 20111222
  Serious: Yes (Death, Hospitalization, Disabling)
  Sender: FDA-Public Use
  Company Number: ZA-ACCORD-010237

PATIENT
  Age: 85 Year
  Sex: Male
  Weight: 55 kg

DRUGS (4)
  1. BICALUTAMIDE [Suspect]
     Indication: PROSTATE CANCER
     Dosage: 50.00-1.0 DAYS
     Dates: start: 20110419, end: 20110831
  2. TRAMAHEXAL (TRAMAHEXAL) [Concomitant]
  3. LUCRIN (LUCRIN) [Concomitant]
  4. VIBROCIL (VIBROCIL) [Concomitant]

REACTIONS (26)
  - GASTROINTESTINAL HAEMORRHAGE [None]
  - INTERNATIONAL NORMALISED RATIO INCREASED [None]
  - DISORIENTATION [None]
  - PENILE HAEMORRHAGE [None]
  - COUGH [None]
  - RESTLESSNESS [None]
  - DYSPHAGIA [None]
  - DRY MOUTH [None]
  - CONTUSION [None]
  - SKIN DISCOLOURATION [None]
  - CYANOSIS [None]
  - PRODUCT SUBSTITUTION ISSUE [None]
  - NAUSEA [None]
  - HYPOPNOEA [None]
  - DYSPNOEA [None]
  - PUPIL FIXED [None]
  - PLATELET COUNT DECREASED [None]
  - METASTASES TO BONE [None]
  - RESPIRATORY ACIDOSIS [None]
  - ASTHENIA [None]
  - UNRESPONSIVE TO STIMULI [None]
  - APLASTIC ANAEMIA [None]
  - HAEMOPTYSIS [None]
  - GINGIVAL BLEEDING [None]
  - OXYGEN SATURATION DECREASED [None]
  - OEDEMA PERIPHERAL [None]
